FAERS Safety Report 9119629 (Version 1)
Quarter: 2013Q1

REPORT INFORMATION
  Report Type: Spontaneous
  Country: US (occurrence: US)
  Receive Date: 20130226
  Receipt Date: 20130226
  Transmission Date: 20140127
  Serious: No
  Sender: FDA-Public Use
  Company Number: US-PFIZER INC-2013067097

PATIENT
  Age: 70 Year
  Sex: Female
  Weight: 62.59 kg

DRUGS (4)
  1. PREMARIN [Suspect]
     Indication: HORMONE REPLACEMENT THERAPY
     Dosage: 1 G, 2X/WEEK
     Route: 067
     Dates: start: 201301
  2. CLONAZEPAM [Concomitant]
     Indication: ANXIETY
     Dosage: 1 MG, 3X/DAY
  3. LIPITOR [Concomitant]
     Dosage: UNK
  4. ATENOLOL [Concomitant]
     Indication: HYPERTENSION
     Dosage: UNK

REACTIONS (2)
  - Hyperhidrosis [Not Recovered/Not Resolved]
  - Drug dose omission [Unknown]
